FAERS Safety Report 7782232-8 (Version None)
Quarter: 2011Q3

REPORT INFORMATION
  Report Type: 
  Country: None (occurrence: None)
  Receive Date: 20110927
  Receipt Date: 20110914
  Transmission Date: 20111222
  Serious: Yes (Congenital Anomaly)
  Sender: FDA-Public Use
  Company Number: US-ELI_LILLY_AND_COMPANY-US201008008824

PATIENT

DRUGS (1)
  1. PROZAC [Suspect]

REACTIONS (3)
  - MATERNAL EXPOSURE DURING PREGNANCY [None]
  - AORTIC VALVE ATRESIA [None]
  - CONGENITAL PULMONARY VALVE ATRESIA [None]
